FAERS Safety Report 23916761 (Version 2)
Quarter: 2024Q2

REPORT INFORMATION
  Report Type: Spontaneous
  Country: CN (occurrence: CN)
  Receive Date: 20240529
  Receipt Date: 20240605
  Transmission Date: 20240716
  Serious: Yes (Other)
  Sender: FDA-Public Use
  Company Number: CN-009507513-2405CHN008400

PATIENT
  Age: 73 Year
  Sex: Male
  Weight: 70 kg

DRUGS (1)
  1. KEYTRUDA [Suspect]
     Active Substance: PEMBROLIZUMAB
     Indication: Lung adenocarcinoma stage IV
     Dosage: 200 MG, ONCE
     Route: 041
     Dates: start: 20240423, end: 20240423

REACTIONS (2)
  - Immune-mediated lung disease [Recovering/Resolving]
  - Pneumonia [Recovering/Resolving]

NARRATIVE: CASE EVENT DATE: 20240424
